FAERS Safety Report 25670085 (Version 1)
Quarter: 2025Q3

REPORT INFORMATION
  Report Type: Spontaneous
  Country: US (occurrence: US)
  Receive Date: 20250812
  Receipt Date: 20250812
  Transmission Date: 20251021
  Serious: Yes (Hospitalization)
  Sender: KALVISTA PHARMACEUTICALS
  Company Number: US-KP-00043

PATIENT
  Age: 40 Year
  Sex: Female

DRUGS (2)
  1. EKTERLY [Suspect]
     Active Substance: SEBETRALSTAT
     Indication: Hereditary angioedema
     Route: 048
  2. TAKHZYRO [Concomitant]
     Active Substance: LANADELUMAB-FLYO
     Indication: Product used for unknown indication

REACTIONS (3)
  - Hereditary angioedema [Not Recovered/Not Resolved]
  - Vomiting [Unknown]
  - Drug ineffective [Unknown]
